FAERS Safety Report 7347727-X (Version None)
Quarter: 2011Q1

REPORT INFORMATION
  Report Type: 
  Country: None (occurrence: None)
  Receive Date: 20110311
  Receipt Date: 20110303
  Transmission Date: 20110831
  Serious: Yes (Other)
  Sender: FDA-Public Use
  Company Number: B0705318A

PATIENT
  Age: 74 Year
  Sex: Male

DRUGS (3)
  1. METOPROLOL [Concomitant]
     Indication: CARDIOVASCULAR DISORDER
  2. ALKERAN [Suspect]
     Indication: LYMPHOMA
     Dosage: 140MG PER DAY
     Route: 042
  3. ACETYLSALICYLIC ACID [Concomitant]
     Indication: CARDIOVASCULAR DISORDER

REACTIONS (1)
  - ENTEROCOLITIS HAEMORRHAGIC [None]
